FAERS Safety Report 14436766 (Version 1)
Quarter: 2018Q1

REPORT INFORMATION
  Report Type: Spontaneous
  Country: TR (occurrence: TR)
  Receive Date: 20180125
  Receipt Date: 20180125
  Transmission Date: 20180509
  Serious: Yes (Hospitalization)
  Sender: FDA-Public Use
  Company Number: TR-INGENUS PHARMACEUTICALS, LLC-INF201801-000080

PATIENT
  Age: 5 Month
  Sex: Female
  Weight: 6.9 kg

DRUGS (2)
  1. CLOBETASOL PROPIONATE. [Suspect]
     Active Substance: CLOBETASOL PROPIONATE
     Indication: DERMATITIS
  2. CEFTRIAXONE. [Concomitant]
     Active Substance: CEFTRIAXONE
     Indication: MENINGITIS BACTERIAL
     Route: 042

REACTIONS (8)
  - Cushing^s syndrome [Recovered/Resolved]
  - Intentional product misuse [Recovered/Resolved]
  - Atrophy [Recovered/Resolved]
  - Delayed myelination [Recovered/Resolved]
  - Hypertension [Recovered/Resolved]
  - Failure to thrive [Recovered/Resolved]
  - Meningitis [Recovered/Resolved]
  - Product use in unapproved indication [Recovered/Resolved]
